FAERS Safety Report 7485983-8 (Version None)
Quarter: 2011Q2

REPORT INFORMATION
  Report Type: 
  Country: None (occurrence: None)
  Receive Date: 20110517
  Receipt Date: 20110303
  Transmission Date: 20111010
  Serious: Yes (Other)
  Sender: FDA-Public Use
  Company Number: US-BAYER-2011-020332

PATIENT
  Sex: Female

DRUGS (2)
  1. YAZ [Suspect]
     Indication: PRODUCT USED FOR UNKNOWN INDICATION
     Dosage: UNK
     Route: 048
     Dates: start: 20051101, end: 20090401
  2. YASMIN [Suspect]
     Indication: PRODUCT USED FOR UNKNOWN INDICATION
     Dosage: UNK
     Route: 048
     Dates: start: 20051101, end: 20090401

REACTIONS (5)
  - GALLBLADDER PAIN [None]
  - PSYCHIATRIC SYMPTOM [None]
  - PAIN [None]
  - ANXIETY [None]
  - POST CHOLECYSTECTOMY SYNDROME [None]
